FAERS Safety Report 5150761-1 (Version None)
Quarter: 2006Q4

REPORT INFORMATION
  Report Type: 
  Country: None (occurrence: None)
  Receive Date: 20061108
  Receipt Date: 20061026
  Transmission Date: 20070319
  Serious: Yes (Hospitalization)
  Sender: FDA-Public Use
  Company Number: 2006US002401

PATIENT
  Age: 15 Year
  Sex: Male

DRUGS (18)
  1. AMBISOME [Suspect]
     Indication: DRUG USE FOR UNKNOWN INDICATION
     Dosage: IV NOS
     Route: 042
     Dates: end: 20060818
  2. CYTARABINE [Suspect]
     Dates: end: 20060830
  3. ASPARAGINASE (ASPARAGINASE) [Suspect]
     Dates: start: 20060623, end: 20060629
  4. FLAGYL [Suspect]
     Dates: start: 20060710, end: 20060902
  5. DAUNORUBICINE (DAUNORUBICIN) [Suspect]
     Dates: start: 20060618, end: 20060701
  6. VINCRISTINE [Suspect]
     Dates: start: 20060618, end: 20060701
  7. CIFLOX (CIPROFLOXACIN HYDROCHLORIDE) [Concomitant]
  8. CEFTAZIDIME PENTAHYDRATE [Concomitant]
  9. AMIKIN [Concomitant]
  10. VANCOMYCINE PCH (VANCOMYCIN HYDROCHLORIDE) [Concomitant]
  11. TIENAM (IMIPENEM, CILASTATIN SODIUM) [Concomitant]
  12. RANITIDINE HYDROCHLORIDE [Concomitant]
  13. ZOFRAN [Concomitant]
  14. NICARDIPINE HYDROCHLORIDE [Concomitant]
  15. BACTRIM (TRIMETHOPRIM) [Concomitant]
  16. VITAMIN B1 TAB [Concomitant]
  17. VITAMIN B6 [Concomitant]
  18. NEXIUM [Concomitant]

REACTIONS (4)
  - ERYTHEMA [None]
  - MALAISE [None]
  - MALNUTRITION [None]
  - POLYNEUROPATHY [None]
